FAERS Safety Report 15455089 (Version 1)
Quarter: 2018Q4

REPORT INFORMATION
  Report Type: Spontaneous
  Country: DE (occurrence: DE)
  Receive Date: 20181002
  Receipt Date: 20181002
  Transmission Date: 20190204
  Serious: Yes (Hospitalization)
  Sender: FDA-Public Use
  Company Number: DE-MYLANLABS-2018M1071059

PATIENT
  Age: 47 Year
  Sex: Male

DRUGS (3)
  1. RELVAR [Concomitant]
     Active Substance: FLUTICASONE FUROATE\VILANTEROL TRIFENATATE
     Indication: PRODUCT USED FOR UNKNOWN INDICATION
     Dosage: UNKNOWN
  2. CANDESARTAN. [Suspect]
     Active Substance: CANDESARTAN
     Indication: PRODUCT USED FOR UNKNOWN INDICATION
     Dosage: TWICE A DAY 8 MG IN ^THE MORNING AND 8 MG IN THE EVENING
  3. CANDESARTAN. [Suspect]
     Active Substance: CANDESARTAN
     Dosage: SINCE 3 DAYS, 16MG INTAKE FOR 3-4 DAYS

REACTIONS (5)
  - Arthralgia [Recovered/Resolved]
  - Gastrointestinal disorder [Not Recovered/Not Resolved]
  - Myalgia [Recovered/Resolved]
  - Pain in extremity [Recovered/Resolved]
  - Oropharyngeal pain [Not Recovered/Not Resolved]
